FAERS Safety Report 9740534 (Version 1)
Quarter: 2013Q4

REPORT INFORMATION
  Report Type: Spontaneous
  Country: US (occurrence: US)
  Receive Date: 20131209
  Receipt Date: 20131209
  Transmission Date: 20140711
  Serious: No
  Sender: FDA-Public Use
  Company Number: US-BIOGENIDEC-2013BI096433

PATIENT
  Age: 62 Year
  Sex: Female
  Weight: 59 kg

DRUGS (10)
  1. TECFIDERA [Suspect]
     Indication: PRODUCT USED FOR UNKNOWN INDICATION
     Route: 048
  2. TECFIDERA [Suspect]
     Indication: PRODUCT USED FOR UNKNOWN INDICATION
     Route: 048
  3. BABY ASPIRIN [Concomitant]
  4. BYSTOLIC [Concomitant]
  5. RAMIPRIL [Concomitant]
  6. PRAVASTATIN [Concomitant]
  7. ESTRACE [Concomitant]
  8. CLOBETASOL [Concomitant]
  9. TYLENOL [Concomitant]
  10. ZOLPIDEM [Concomitant]

REACTIONS (6)
  - Feeling abnormal [Unknown]
  - Flushing [Recovered/Resolved]
  - Erythema [Unknown]
  - Rash [Unknown]
  - Nausea [Unknown]
  - Vomiting [Unknown]
